FAERS Safety Report 16568305 (Version 4)
Quarter: 2021Q3

REPORT INFORMATION
  Report Type: Report from Study
  Country: DE (occurrence: DE)
  Receive Date: 20190712
  Receipt Date: 20210813
  Transmission Date: 20211014
  Serious: Yes (Hospitalization)
  Sender: FDA-Public Use
  Company Number: PHHY2017DE073524

PATIENT
  Age: 54 Year
  Sex: Male
  Weight: 102 kg

DRUGS (22)
  1. TAFINLAR [Suspect]
     Active Substance: DABRAFENIB MESYLATE
     Dosage: 150 MG, BID
     Route: 048
     Dates: start: 20180117, end: 20180215
  2. TRAMETINIB [Suspect]
     Active Substance: TRAMETINIB
     Dosage: 2 MG, QD
     Route: 048
     Dates: start: 20180216, end: 20210216
  3. AMOXICLAV [Concomitant]
     Active Substance: AMOXICILLIN\CLAVULANATE POTASSIUM
     Indication: PRODUCT USED FOR UNKNOWN INDICATION
     Dosage: 875 MG, QD
     Route: 048
     Dates: start: 20170306, end: 20170611
  4. TAFINLAR [Suspect]
     Active Substance: DABRAFENIB MESYLATE
     Indication: MALIGNANT MELANOMA
     Dosage: 150 MG, BID
     Route: 048
     Dates: start: 20161207, end: 20180116
  5. TAFINLAR [Suspect]
     Active Substance: DABRAFENIB MESYLATE
     Dosage: 150 MG, BID
     Route: 048
     Dates: start: 20210217
  6. TRAMETINIB [Suspect]
     Active Substance: TRAMETINIB
     Dosage: 1 MG, QD
     Route: 048
     Dates: start: 20210217
  7. FUSIDINE [Concomitant]
     Active Substance: FUSIDIC ACID
     Indication: PRODUCT USED FOR UNKNOWN INDICATION
     Dosage: UNK UNK, QD
     Route: 061
     Dates: start: 20161211, end: 20170125
  8. TRAMETINIB [Suspect]
     Active Substance: TRAMETINIB
     Dosage: 1 MG, QD
     Route: 048
     Dates: start: 20180117, end: 20180215
  9. TILIDIN [Concomitant]
     Active Substance: NALOXONE HYDROCHLORIDE\TILIDINE HYDROCHLORIDE
     Indication: MALIGNANT MELANOMA
     Dosage: 50 MG, TID
     Route: 048
  10. CODEINE [Concomitant]
     Active Substance: CODEINE
     Indication: PRODUCT USED FOR UNKNOWN INDICATION
     Dosage: 30 DRP, QD
     Route: 048
     Dates: start: 20170331, end: 20170410
  11. CARMEN [Concomitant]
     Indication: HYPERTENSION
     Dosage: 10 MG, QD
     Route: 048
  12. METOPROLOL. [Concomitant]
     Active Substance: METOPROLOL
     Indication: HYPERTENSION
     Dosage: 95 MG, QD
     Route: 048
  13. OMEPRAZOLE. [Concomitant]
     Active Substance: OMEPRAZOLE
     Indication: PRODUCT USED FOR UNKNOWN INDICATION
     Dosage: 20 MG, QD
     Route: 048
     Dates: start: 20170701
  14. CALCIUM [Concomitant]
     Active Substance: CALCIUM
     Indication: PRODUCT USED FOR UNKNOWN INDICATION
     Dosage: 500 MG, UNK
     Route: 065
  15. TAFINLAR [Suspect]
     Active Substance: DABRAFENIB MESYLATE
     Dosage: 150 MG, BID
     Route: 048
     Dates: start: 20180216, end: 20210216
  16. TRAMETINIB [Suspect]
     Active Substance: TRAMETINIB
     Indication: MALIGNANT MELANOMA
     Dosage: 2 MG, QD
     Route: 048
     Dates: start: 20161207, end: 20180116
  17. PREDNISOLONE. [Suspect]
     Active Substance: PREDNISOLONE
     Indication: AUTOIMMUNE HEPATITIS
     Dosage: 2 MG, QD (1?0?0?0)
     Route: 065
  18. SINUPRET [Concomitant]
     Active Substance: DIETARY SUPPLEMENT\HERBALS
     Indication: PRODUCT USED FOR UNKNOWN INDICATION
     Dosage: 1 DF, TID
     Route: 048
     Dates: start: 20170331, end: 20170410
  19. PREDNISOLONE. [Suspect]
     Active Substance: PREDNISOLONE
     Dosage: 50 MG, QD
     Route: 048
     Dates: start: 20161130, end: 20170209
  20. NOVAMINSULFON [Concomitant]
     Active Substance: METAMIZOLE
     Indication: MALIGNANT MELANOMA
     Dosage: 30 DRP, QID
     Route: 048
  21. BUDENOFALK [Concomitant]
     Active Substance: BUDESONIDE
     Indication: AUTOIMMUNE HEPATITIS
     Dosage: 3 MG, BID
     Route: 048
     Dates: start: 20161130, end: 20170209
  22. ADVANTAN [Concomitant]
     Active Substance: METHYLPREDNISOLONE ACEPONATE
     Indication: PRODUCT USED FOR UNKNOWN INDICATION
     Dosage: UNK UNK, QD
     Route: 061
     Dates: start: 20161211, end: 20170125

REACTIONS (14)
  - Dyspnoea [Unknown]
  - Pyrexia [Recovered/Resolved]
  - Rash maculo-papular [Recovered/Resolved]
  - Mucosal dryness [Not Recovered/Not Resolved]
  - Pyrexia [Recovered/Resolved]
  - Eczema [Recovered/Resolved]
  - Nasopharyngitis [Recovered/Resolved]
  - Arthralgia [Recovering/Resolving]
  - Dyspepsia [Recovered/Resolved]
  - Angina pectoris [Unknown]
  - Palpitations [Unknown]
  - Vertigo [Not Recovered/Not Resolved]
  - Nasopharyngitis [Recovered/Resolved]
  - Blood creatine phosphokinase increased [Not Recovered/Not Resolved]

NARRATIVE: CASE EVENT DATE: 20161211
